FAERS Safety Report 4870574-5 (Version None)
Quarter: 2006Q1

REPORT INFORMATION
  Report Type: 
  Country: None (occurrence: None)
  Receive Date: 20060103
  Receipt Date: 20051222
  Transmission Date: 20060701
  Serious: Yes (Hospitalization)
  Sender: FDA-Public Use
  Company Number: FR-AVENTIS-200514299FR

PATIENT
  Age: 75 Year
  Sex: Male

DRUGS (11)
  1. FLAGYL [Suspect]
     Indication: CLOSTRIDIAL INFECTION
  2. SINTROM [Suspect]
  3. TRIFLUCAN [Suspect]
  4. LASILIX [Concomitant]
  5. VASTEN [Concomitant]
  6. ZOLTUM [Concomitant]
  7. ALLOPURINOL [Concomitant]
  8. DIGOXIN [Concomitant]
  9. XANAX [Concomitant]
  10. DECAPEPTYL                              /SCH/ [Concomitant]
  11. SERETIDE [Concomitant]

REACTIONS (6)
  - ANAEMIA [None]
  - ASTHENIA [None]
  - CLOSTRIDIAL INFECTION [None]
  - DRUG INTERACTION [None]
  - INTERNATIONAL NORMALISED RATIO INCREASED [None]
  - MELAENA [None]
